FAERS Safety Report 4783896-3 (Version None)
Quarter: 2005Q3

REPORT INFORMATION
  Report Type: 
  Country: None (occurrence: None)
  Receive Date: 20050929
  Receipt Date: 20050621
  Transmission Date: 20060218
  Serious: Yes (Death)
  Sender: FDA-Public Use
  Company Number: US-MERCK-0506USA03310

PATIENT
  Age: 56 Year
  Sex: Female

DRUGS (20)
  1. SYNTHROID [Concomitant]
     Indication: THYROID DISORDER
     Route: 048
  2. NAPROXEN [Concomitant]
     Indication: PAIN
     Route: 048
  3. BENADRYL [Concomitant]
     Indication: HYPERSENSITIVITY
     Route: 048
  4. MECLIZINE [Concomitant]
     Indication: DIZZINESS
     Route: 048
  5. CELEXA [Concomitant]
     Indication: DEPRESSION
     Route: 048
  6. ACIPHEX [Concomitant]
     Indication: GASTRIC DISORDER
     Route: 048
  7. ZYRTEC [Concomitant]
     Indication: HYPERSENSITIVITY
     Route: 048
  8. TRAZODONE HYDROCHLORIDE [Concomitant]
     Route: 048
  9. FUROSEMIDE [Concomitant]
     Indication: HYPERTENSION
     Route: 048
  10. SKELAXIN [Concomitant]
     Indication: MUSCLE RELAXANT THERAPY
     Route: 048
  11. CARDIZEM [Concomitant]
     Indication: CHEST PAIN
     Route: 048
  12. ALLEGRA [Concomitant]
     Indication: HYPERSENSITIVITY
     Route: 048
  13. VICODIN [Concomitant]
     Indication: PAIN
     Route: 048
  14. ZESTRIL [Concomitant]
     Indication: HYPERTENSION
     Route: 048
  15. CEFZIL [Concomitant]
     Route: 048
  16. COMBIVENT [Concomitant]
     Indication: CHRONIC OBSTRUCTIVE PULMONARY DISEASE
     Route: 048
  17. POTASSIUM (UNSPECIFIED) [Concomitant]
     Indication: SUBSTITUTION THERAPY
     Route: 048
  18. ZAROXOLYN [Concomitant]
     Indication: HYPERTENSION
     Route: 048
  19. VIOXX [Suspect]
     Indication: ARTHRITIS
     Route: 048
     Dates: start: 20010716, end: 20040902
  20. ZOCOR [Concomitant]
     Indication: BLOOD CHOLESTEROL INCREASED
     Route: 048

REACTIONS (22)
  - ACUTE SINUSITIS [None]
  - BRUXISM [None]
  - CARDIAC ARREST [None]
  - CARDIAC VALVE DISEASE [None]
  - CEREBROVASCULAR ACCIDENT [None]
  - CHEST WALL PAIN [None]
  - CONTUSION [None]
  - DIVERTICULITIS [None]
  - DYSKINESIA [None]
  - EXCORIATION [None]
  - FALL [None]
  - HYPOKALAEMIA [None]
  - JOINT SPRAIN [None]
  - MYALGIA [None]
  - MYOCARDIAL INFARCTION [None]
  - OSTEOARTHRITIS [None]
  - RECTAL HAEMORRHAGE [None]
  - RHEUMATOID ARTHRITIS [None]
  - SKIN LACERATION [None]
  - SLEEP APNOEA SYNDROME [None]
  - THYROID DISORDER [None]
  - VIRAL INFECTION [None]
